FAERS Safety Report 9641622 (Version 1)
Quarter: 2013Q4

REPORT INFORMATION
  Report Type: Spontaneous
  Country: FR (occurrence: None)
  Receive Date: 20131021
  Receipt Date: 20131021
  Transmission Date: 20140711
  Serious: Yes (Hospitalization)
  Sender: FDA-Public Use
  Company Number: FK201304624

PATIENT
  Age: 47 Year
  Sex: Male

DRUGS (3)
  1. DEXAMETHASONE [Suspect]
     Indication: NEOPLASM SKIN
  2. CYTARABINE [Suspect]
     Indication: NEOPLASM SKIN
  3. CARBOPLATIN [Suspect]
     Indication: NEOPLASM SKIN

REACTIONS (4)
  - Febrile neutropenia [None]
  - Rash pustular [None]
  - Neutrophilia [None]
  - Leukocytosis [None]
